FAERS Safety Report 24896284 (Version 1)
Quarter: 2025Q1

REPORT INFORMATION
  Report Type: Spontaneous
  Country: JP (occurrence: JP)
  Receive Date: 20250128
  Receipt Date: 20250128
  Transmission Date: 20250408
  Serious: Yes (Other)
  Sender: PERRIGO
  Company Number: JP-MLMSERVICE-20250114-PI357681-00030-1

PATIENT
  Age: 22 Year
  Sex: Male

DRUGS (1)
  1. IBUPROFEN [Suspect]
     Active Substance: IBUPROFEN
     Indication: Headache
     Route: 048

REACTIONS (1)
  - Generalised bullous fixed drug eruption [Recovered/Resolved]
